FAERS Safety Report 7132148-5 (Version None)
Quarter: 2010Q4

REPORT INFORMATION
  Report Type: 
  Country: None (occurrence: None)
  Receive Date: 20101129
  Receipt Date: 20101129
  Transmission Date: 20110411
  Serious: Yes (Life-Threatening)
  Sender: FDA-Public Use
  Company Number: None

PATIENT

DRUGS (1)
  1. RISPERDAL CONSTA [Suspect]
     Dosage: 37.5 EVERY 3 WEEKS
     Dates: start: 20101022, end: 20101107

REACTIONS (5)
  - DYSTONIA [None]
  - HEADACHE [None]
  - PAIN [None]
  - SELF-INJURIOUS IDEATION [None]
  - VISION BLURRED [None]
